FAERS Safety Report 5617264-9 (Version None)
Quarter: 2008Q1

REPORT INFORMATION
  Report Type: 
  Country: None (occurrence: None)
  Receive Date: 20080207
  Receipt Date: 20070629
  Transmission Date: 20080703
  Serious: No
  Sender: FDA-Public Use
  Company Number: A0658095A

PATIENT
  Age: 43 Year
  Sex: Female

DRUGS (1)
  1. PAXIL [Suspect]
     Indication: DRUG USE FOR UNKNOWN INDICATION
     Route: 048
     Dates: end: 20070401

REACTIONS (7)
  - AGITATION [None]
  - DISTURBANCE IN ATTENTION [None]
  - FEAR [None]
  - FEELING ABNORMAL [None]
  - HEADACHE [None]
  - PARAESTHESIA [None]
  - WITHDRAWAL SYNDROME [None]
